FAERS Safety Report 14078188 (Version 1)
Quarter: 2017Q4

REPORT INFORMATION
  Report Type: Spontaneous
  Country: US (occurrence: US)
  Receive Date: 20171012
  Receipt Date: 20171012
  Transmission Date: 20180321
  Serious: Yes (Other)
  Sender: FDA-Public Use
  Company Number: US-MYLANLABS-2017M1019817

PATIENT
  Sex: Female

DRUGS (1)
  1. CARBIDOPA,LEVODOPA MYLAN [Suspect]
     Active Substance: CARBIDOPA\LEVODOPA
     Indication: PARKINSON^S DISEASE
     Dosage: UNK
     Route: 048
     Dates: start: 2016

REACTIONS (2)
  - Adverse event [Unknown]
  - Product substitution issue [Unknown]
